FAERS Safety Report 8157194-4 (Version None)
Quarter: 2012Q1

REPORT INFORMATION
  Report Type: 
  Country: None (occurrence: None)
  Receive Date: 20120222
  Receipt Date: 20120220
  Transmission Date: 20120608
  Serious: Yes (Hospitalization, Other)
  Sender: FDA-Public Use
  Company Number: US-BAYER-2012-016919

PATIENT
  Age: 67 Year
  Sex: Female

DRUGS (2)
  1. MAGNEVIST [Suspect]
     Dosage: UNK
     Dates: start: 20120217, end: 20120217
  2. MAGNEVIST [Suspect]
     Indication: NUCLEAR MAGNETIC RESONANCE IMAGING
     Dosage: 25 ML, ONCE
     Dates: start: 20120217, end: 20120217

REACTIONS (3)
  - ERYTHEMA [None]
  - ANAPHYLACTIC REACTION [None]
  - SWOLLEN TONGUE [None]
